FAERS Safety Report 6193567-7 (Version None)
Quarter: 2009Q2

REPORT INFORMATION
  Report Type: 
  Country: None (occurrence: None)
  Receive Date: 20090518
  Receipt Date: 20090506
  Transmission Date: 20091009
  Serious: Yes (Other)
  Sender: FDA-Public Use
  Company Number: GB-B.I. PHARMACEUTICALS,INC./RIDGEFIELD-2009-UK-00404UK

PATIENT
  Age: 32 Year
  Sex: Female

DRUGS (4)
  1. VIRAMUNE [Suspect]
     Indication: HIV INFECTION
     Dosage: 200MG TWICE DAILY
     Route: 048
     Dates: start: 20070718
  2. EPIVIR [Suspect]
     Indication: HIV INFECTION
     Dosage: 150MG X 2 DAILY
     Route: 048
     Dates: start: 20070718
  3. GENATOSAN MULTIVITAMINS [Suspect]
  4. TENOFOVIR [Suspect]
     Indication: HIV INFECTION
     Route: 048

REACTIONS (3)
  - ABORTION SPONTANEOUS [None]
  - DRUG EXPOSURE DURING PREGNANCY [None]
  - ILL-DEFINED DISORDER [None]
